FAERS Safety Report 9849072 (Version 1)
Quarter: 2014Q1

REPORT INFORMATION
  Report Type: Spontaneous
  Country: GB (occurrence: None)
  Receive Date: 20140124
  Receipt Date: 20140124
  Transmission Date: 20141002
  Serious: Yes (Other)
  Sender: FDA-Public Use
  Company Number: AUR-APL-2014-00538

PATIENT
  Age: 67 Year
  Sex: Female

DRUGS (2)
  1. CLOPIDOGREL [Suspect]
     Indication: TRANSIENT ISCHAEMIC ATTACK
     Dosage: 1 IN 1 D
     Route: 048
     Dates: start: 201007
  2. FLUPENTHIXOL DECANOATE (FLUPENTIXOL DUCANOATE) [Concomitant]

REACTIONS (1)
  - Neutropenia [None]
